FAERS Safety Report 5294853-5 (Version None)
Quarter: 2007Q2

REPORT INFORMATION
  Report Type: 
  Country: None (occurrence: None)
  Receive Date: 20070412
  Receipt Date: 20070409
  Transmission Date: 20071010
  Serious: Yes (Hospitalization, Other)
  Sender: FDA-Public Use
  Company Number: US-GENENTECH-239553

PATIENT
  Sex: Female

DRUGS (3)
  1. AVASTIN [Suspect]
     Indication: BREAST CANCER METASTATIC
     Dosage: UNK, Q3W
     Route: 042
     Dates: start: 20060801
  2. ABRAXANE [Concomitant]
     Indication: BREAST CANCER METASTATIC
  3. RADIATION [Concomitant]
     Indication: BONE PAIN

REACTIONS (1)
  - OESOPHAGEAL PERFORATION [None]
